FAERS Safety Report 7730035-2 (Version None)
Quarter: 2011Q3

REPORT INFORMATION
  Report Type: 
  Country: None (occurrence: None)
  Receive Date: 20110906
  Receipt Date: 20110825
  Transmission Date: 20111222
  Serious: Yes (Hospitalization)
  Sender: FDA-Public Use
  Company Number: PHFR2011GB04779

PATIENT
  Sex: Male

DRUGS (2)
  1. OPIOIDS [Suspect]
     Dosage: UNK
     Route: 065
  2. CLOZAPINE [Suspect]
     Indication: SCHIZOPHRENIA
     Route: 065
     Dates: start: 20100921

REACTIONS (1)
  - OVERDOSE [None]
